FAERS Safety Report 18215957 (Version 1)
Quarter: 2020Q3

REPORT INFORMATION
  Report Type: Report from Study
  Country: CA (occurrence: CA)
  Receive Date: 20200901
  Receipt Date: 20200901
  Transmission Date: 20201103
  Serious: Yes (Hospitalization)
  Sender: FDA-Public Use
  Company Number: CA-MTPC-MTDA2020-0059932

PATIENT
  Age: 57 Year
  Sex: Male

DRUGS (5)
  1. RILUTEK [Concomitant]
     Active Substance: RILUZOLE
     Indication: PRODUCT USED FOR UNKNOWN INDICATION
     Dosage: 50 MILLIGRAM, BID
     Route: 065
     Dates: start: 201902
  2. EDARAVONE INJ (SAP) [Suspect]
     Active Substance: EDARAVONE
     Dosage: 60 MILLIGRAM, QD 10 DAYS OUT OF 14 ON, 14 DAYS OFF
     Route: 042
     Dates: start: 20200731
  3. EDARAVONE INJ (SAP) [Suspect]
     Active Substance: EDARAVONE
     Indication: AMYOTROPHIC LATERAL SCLEROSIS
     Dosage: UNK
     Route: 065
     Dates: start: 20200211
  4. EDARAVONE INJ (SAP) [Suspect]
     Active Substance: EDARAVONE
     Dosage: UNK, QD FOR 10 DAYS OUT OF 14 ON, 14 DAYS OFF
     Route: 042
  5. EDARAVONE INJ (SAP) [Suspect]
     Active Substance: EDARAVONE
     Dosage: 60 MILLIGRAM, QD 10 DAYS OUT OF 14 ON, 14 DAYS OFF
     Route: 042
     Dates: start: 20200824

REACTIONS (1)
  - Nausea [Recovered/Resolved]
